FAERS Safety Report 8115724-2 (Version None)
Quarter: 2011Q4

REPORT INFORMATION
  Report Type: 
  Country: None (occurrence: None)
  Receive Date: 20111227
  Receipt Date: 20111012
  Transmission Date: 20120403
  Serious: Yes (Other)
  Sender: FDA-Public Use
  Company Number: PHEH2011US02758

PATIENT
  Age: 57 Year
  Sex: Female
  Weight: 96.6 kg

DRUGS (1)
  1. GILENYA [Suspect]
     Dosage: 0.5 MG, ORAL
     Route: 048

REACTIONS (1)
  - HERPES ZOSTER [None]
